FAERS Safety Report 9775716 (Version 2)
Quarter: 2013Q4

REPORT INFORMATION
  Report Type: Spontaneous
  Country: JP (occurrence: JP)
  Receive Date: 20131220
  Receipt Date: 20131220
  Transmission Date: 20140711
  Serious: Yes (Other)
  Sender: FDA-Public Use
  Company Number: JP-OTSUKA-02100-JPN-05-0084

PATIENT
  Age: 70 Year
  Sex: Male

DRUGS (5)
  1. PLETAAL [Suspect]
     Indication: CEREBRAL INFARCTION
     Dosage: 100 MG, BID
     Route: 048
     Dates: start: 20050216
  2. FAROM [Concomitant]
     Indication: PNEUMONIA
     Dosage: 150 MG, TID
     Route: 048
     Dates: start: 20050215, end: 20050218
  3. ALLEGRA [Concomitant]
     Indication: PRURITUS
     Dosage: 60 MG, BID
     Route: 048
     Dates: start: 20050202
  4. GOSHA-JINKI-GAN [Concomitant]
     Route: 048
     Dates: start: 20050221
  5. LENDORMIN [Concomitant]
     Indication: INSOMNIA
     Route: 048

REACTIONS (3)
  - Hallucination [Not Recovered/Not Resolved]
  - Insomnia [Unknown]
  - Pain [Unknown]
